FAERS Safety Report 9468796 (Version 2)
Quarter: 2013Q3

REPORT INFORMATION
  Report Type: Spontaneous
  Country: FR (occurrence: FR)
  Receive Date: 20130821
  Receipt Date: 20130916
  Transmission Date: 20140515
  Serious: Yes (Other)
  Sender: FDA-Public Use
  Company Number: FR-ROCHE-1264062

PATIENT
  Age: 63 Year
  Sex: Male

DRUGS (6)
  1. XELODA [Suspect]
     Indication: COLON NEOPLASM
     Dosage: 1500 MG IN MORNING AND 1500 MG IN EVENING
     Route: 048
     Dates: start: 20130625
  2. XELODA [Suspect]
     Indication: METASTASES TO LUNG
     Route: 048
     Dates: start: 20130730
  3. XELODA [Suspect]
     Indication: METASTASES TO ADRENALS
  4. ERBITUX [Suspect]
     Indication: PRODUCT USED FOR UNKNOWN INDICATION
     Route: 042
     Dates: start: 20130625
  5. OXALIPLATIN [Suspect]
     Indication: PRODUCT USED FOR UNKNOWN INDICATION
     Route: 042
     Dates: start: 20130625
  6. OXALIPLATIN [Suspect]
     Route: 042
     Dates: start: 20130730

REACTIONS (5)
  - Mucosal inflammation [Recovering/Resolving]
  - Neurotoxicity [Recovering/Resolving]
  - Herpes virus infection [Recovered/Resolved]
  - Skin toxicity [Recovered/Resolved]
  - Mouth ulceration [Recovered/Resolved]
